FAERS Safety Report 9900063 (Version 1)
Quarter: 2014Q1

REPORT INFORMATION
  Report Type: Spontaneous
  Country: US (occurrence: US)
  Receive Date: 20140214
  Receipt Date: 20140214
  Transmission Date: 20141002
  Serious: No
  Sender: FDA-Public Use
  Company Number: US-GILEAD-2014-0094552

PATIENT
  Sex: Male

DRUGS (2)
  1. LETAIRIS [Suspect]
     Indication: PRODUCT USED FOR UNKNOWN INDICATION
     Dosage: 5 MG, QD
     Route: 048
     Dates: start: 20120419
  2. ADCIRCA [Concomitant]

REACTIONS (4)
  - Influenza [Unknown]
  - Respiratory tract infection [Unknown]
  - Nasopharyngitis [Unknown]
  - Dyspnoea [Unknown]
